FAERS Safety Report 4648410-1 (Version None)
Quarter: 2005Q2

REPORT INFORMATION
  Report Type: 
  Country: None (occurrence: None)
  Receive Date: 20050427
  Receipt Date: 20050420
  Transmission Date: 20051028
  Serious: Yes (Death)
  Sender: FDA-Public Use
  Company Number: HQWYE170620APR05

PATIENT
  Age: 75 Year
  Sex: Female

DRUGS (3)
  1. CORDARONE [Suspect]
     Dosage: 0.2 G 1X PER 1 DAY, ORAL
     Route: 048
  2. MORPHINE SULFATE [Concomitant]
  3. FUROSEMIDE [Concomitant]

REACTIONS (1)
  - ELECTROCARDIOGRAM ABNORMAL [None]
